FAERS Safety Report 17940070 (Version 2)
Quarter: 2020Q4

REPORT INFORMATION
  Report Type: Spontaneous
  Country: TN (occurrence: TN)
  Receive Date: 20200625
  Receipt Date: 20201021
  Transmission Date: 20210113
  Serious: Yes (Hospitalization, Other)
  Sender: FDA-Public Use
  Company Number: TN-SA-2020SA154979

PATIENT

DRUGS (1)
  1. DOCETAXEL. [Suspect]
     Active Substance: DOCETAXEL
     Indication: BREAST CANCER
     Dosage: 100 MG/M2, QCY
     Route: 065

REACTIONS (8)
  - Aplasia [Recovered/Resolved]
  - Pigmentation disorder [Recovering/Resolving]
  - Skin lesion [Recovering/Resolving]
  - Neutropenia [Recovering/Resolving]
  - Skin plaque [Recovering/Resolving]
  - Condition aggravated [Recovered/Resolved]
  - Injection site extravasation [Recovering/Resolving]
  - Pyrexia [Recovered/Resolved]
